FAERS Safety Report 10010037 (Version 2)
Quarter: 2014Q1

REPORT INFORMATION
  Report Type: Spontaneous
  Country: US (occurrence: US)
  Receive Date: 20140312
  Receipt Date: 20140312
  Transmission Date: 20141002
  Serious: No
  Sender: FDA-Public Use
  Company Number: US-INCYTE CORPORATION-2013IN000944

PATIENT
  Sex: Male

DRUGS (4)
  1. JAKAFI [Suspect]
     Indication: ILL-DEFINED DISORDER
     Dosage: 10 MG, BID
     Route: 048
     Dates: start: 20120123
  2. CARDURA [Concomitant]
  3. PROCARDIA [Concomitant]
  4. SYNTHROID [Concomitant]

REACTIONS (2)
  - Fatigue [Unknown]
  - Dizziness [Unknown]
